FAERS Safety Report 20806150 (Version 1)
Quarter: 2022Q2

REPORT INFORMATION
  Report Type: Spontaneous
  Country: US (occurrence: US)
  Receive Date: 20220510
  Receipt Date: 20220510
  Transmission Date: 20220720
  Serious: No
  Sender: FDA-Public Use
  Company Number: US-ALLERGAN-2208944US

PATIENT
  Age: 7 Decade
  Sex: Male
  Weight: 90.703 kg

DRUGS (1)
  1. VUITY [Suspect]
     Active Substance: PILOCARPINE HYDROCHLORIDE
     Indication: Diplopia
     Dosage: 2 GTT
     Dates: start: 20220313, end: 20220313

REACTIONS (6)
  - Mydriasis [Unknown]
  - Off label use [Unknown]
  - Halo vision [Recovering/Resolving]
  - Eye irritation [Recovering/Resolving]
  - Eye pain [Recovering/Resolving]
  - Visual impairment [Recovering/Resolving]

NARRATIVE: CASE EVENT DATE: 20220313
